FAERS Safety Report 4283447-6 (Version None)
Quarter: 2004Q1

REPORT INFORMATION
  Report Type: 
  Country: None (occurrence: None)
  Receive Date: 20040121
  Receipt Date: 20021221
  Transmission Date: 20041129
  Serious: Yes (Hospitalization)
  Sender: FDA-Public Use
  Company Number: A03200300011

PATIENT
  Age: 76 Year
  Sex: Male

DRUGS (6)
  1. PLAVIX [Suspect]
     Indication: CEREBROVASCULAR ACCIDENT PROPHYLAXIS
     Dosage: 75 MG OD - ORAL
     Route: 048
     Dates: start: 20000101, end: 20010131
  2. PLAVIX [Suspect]
     Indication: MYOCARDIAL INFARCTION
     Dosage: 75 MG OD - ORAL
     Route: 048
     Dates: start: 20000101, end: 20010131
  3. PLAVIX [Suspect]
     Indication: PROPHYLAXIS
     Dosage: 75 MG OD - ORAL
     Route: 048
     Dates: start: 20000101, end: 20010131
  4. ACETYLSALICYLIC ACID SRT [Concomitant]
  5. LABETALOL HYDROCHLORIDE [Concomitant]
  6. POTASSIUM [Concomitant]

REACTIONS (2)
  - BLOOD DISORDER [None]
  - CEREBRAL HAEMATOMA [None]
